FAERS Safety Report 8756463 (Version 5)
Quarter: 2013Q1

REPORT INFORMATION
  Report Type: Spontaneous
  Country: US (occurrence: US)
  Receive Date: 20120828
  Receipt Date: 20130325
  Transmission Date: 20140127
  Serious: Yes (Hospitalization)
  Sender: FDA-Public Use
  Company Number: US-BIOGENIDEC-2012BI032687

PATIENT
  Age: 64 Year
  Sex: Female

DRUGS (7)
  1. TYSABRI [Suspect]
     Indication: MULTIPLE SCLEROSIS
     Route: 042
     Dates: start: 20070307, end: 20120803
  2. TYSABRI [Suspect]
     Indication: MULTIPLE SCLEROSIS
     Route: 042
  3. PROPRANOLOL [Concomitant]
     Indication: TREMOR
  4. PROPRANOLOL [Concomitant]
     Indication: APHASIA
  5. PROPRANOLOL [Concomitant]
     Indication: TREMOR
  6. PROPRANOLOL [Concomitant]
     Indication: TREMOR
  7. AMBIEN [Concomitant]
     Indication: INSOMNIA

REACTIONS (2)
  - Urinary tract infection [Recovered/Resolved]
  - Pneumonia [Recovered/Resolved]
